FAERS Safety Report 14603165 (Version 1)
Quarter: 2018Q1

REPORT INFORMATION
  Report Type: Report from Study
  Country: US (occurrence: US)
  Receive Date: 20180306
  Receipt Date: 20180306
  Transmission Date: 20180509
  Serious: No
  Sender: FDA-Public Use
  Company Number: US-THERATECHNOLOGIES, INC.-TH-2018-00194

PATIENT

DRUGS (13)
  1. NADOLOL. [Concomitant]
     Active Substance: NADOLOL
     Dosage: UNK
  2. ANDROGEL [Concomitant]
     Active Substance: TESTOSTERONE
     Dosage: UNK
  3. ISENTRESS [Concomitant]
     Active Substance: RALTEGRAVIR POTASSIUM
     Dosage: UNK
  4. ACYCLOVIR                          /00587301/ [Concomitant]
     Active Substance: ACYCLOVIR
     Dosage: UNK
  5. TRUVADA [Concomitant]
     Active Substance: EMTRICITABINE\TENOFOVIR DISOPROXIL FUMARATE
     Dosage: UNK
  6. NASONEX [Concomitant]
     Active Substance: MOMETASONE FUROATE
     Dosage: UNK
  7. EGRIFTA [Suspect]
     Active Substance: TESAMORELIN
     Dosage: UNK
     Dates: start: 201711, end: 20180223
  8. ALBUTEROL                          /00139501/ [Concomitant]
     Active Substance: ALBUTEROL
     Dosage: UNK
  9. CRESTOR [Concomitant]
     Active Substance: ROSUVASTATIN CALCIUM
     Dosage: UNK
  10. NIACIN. [Concomitant]
     Active Substance: NIACIN
     Dosage: UNK
  11. ADVAIR HFA [Concomitant]
     Active Substance: FLUTICASONE PROPIONATE\SALMETEROL XINAFOATE
     Dosage: UNK
  12. INTELENCE [Concomitant]
     Active Substance: ETRAVIRINE
     Dosage: UNK
  13. SELZENTRY [Concomitant]
     Active Substance: MARAVIROC
     Dosage: UNK

REACTIONS (3)
  - Injection site bruising [Not Recovered/Not Resolved]
  - Injection site swelling [Not Recovered/Not Resolved]
  - Injection site pain [Not Recovered/Not Resolved]

NARRATIVE: CASE EVENT DATE: 2017
